FAERS Safety Report 9959295 (Version 1)
Quarter: 2014Q1

REPORT INFORMATION
  Report Type: Report from Study
  Country: US (occurrence: US)
  Receive Date: 20140305
  Receipt Date: 20140305
  Transmission Date: 20141002
  Serious: No
  Sender: FDA-Public Use
  Company Number: US-ABBVIE-13P-163-1102451-00

PATIENT
  Age: 29 Year
  Sex: Male

DRUGS (2)
  1. HUMIRA [Suspect]
     Indication: COLITIS ULCERATIVE
     Dosage: DAY 1 TITRATION DOSE
     Route: 058
     Dates: start: 20130531, end: 20130531
  2. HUMIRA [Suspect]

REACTIONS (2)
  - Cough [Unknown]
  - Rhinorrhoea [Unknown]
